FAERS Safety Report 14695269 (Version 2)
Quarter: 2018Q2

REPORT INFORMATION
  Report Type: Report from Study
  Country: US (occurrence: US)
  Receive Date: 20180329
  Receipt Date: 20180507
  Transmission Date: 20180711
  Serious: Yes (Hospitalization, Other)
  Sender: FDA-Public Use
  Company Number: US-ACTELION-A-NJ2018-167588

PATIENT
  Age: 56 Year
  Sex: Female
  Weight: 86.62 kg

DRUGS (4)
  1. EPOPROSTENOL. [Concomitant]
     Active Substance: EPOPROSTENOL
  2. OPSUMIT [Suspect]
     Active Substance: MACITENTAN
     Indication: PULMONARY HYPERTENSION
     Dosage: 10 MG, QD
     Route: 048
  3. ADCIRCA [Concomitant]
     Active Substance: TADALAFIL
  4. VELETRI [Suspect]
     Active Substance: EPOPROSTENOL
     Indication: PULMONARY HYPERTENSION
     Dosage: 7 NG/KG, PER MIN
     Route: 042

REACTIONS (13)
  - Hypotension [Unknown]
  - Headache [Recovering/Resolving]
  - Fluid retention [Unknown]
  - Haemoptysis [Recovering/Resolving]
  - Gastric varices [Recovering/Resolving]
  - Pulmonary arterial pressure increased [Unknown]
  - Liver transplant [Unknown]
  - Respiratory disorder [Recovering/Resolving]
  - Flushing [Recovering/Resolving]
  - Fatigue [Unknown]
  - Heart transplant [Unknown]
  - Right ventricular failure [Unknown]
  - Nausea [Unknown]
